FAERS Safety Report 24116121 (Version 1)
Quarter: 2024Q3

REPORT INFORMATION
  Report Type: Report from Study
  Country: GB (occurrence: GB)
  Receive Date: 20240722
  Receipt Date: 20240722
  Transmission Date: 20241016
  Serious: Yes (Hospitalization, Other)
  Sender: BAXTER
  Company Number: GB-BAXTER-2024BAX021529

PATIENT
  Sex: Female

DRUGS (43)
  1. SODIUM CHLORIDE [Suspect]
     Active Substance: SODIUM CHLORIDE
     Indication: Parenteral nutrition
     Dosage: 3000 ML BAG
     Route: 065
  2. SODIUM CHLORIDE [Suspect]
     Active Substance: SODIUM CHLORIDE
     Dosage: 2000 ML BAG
     Route: 065
  3. SODIUM CHLORIDE [Suspect]
     Active Substance: SODIUM CHLORIDE
     Dosage: 1466 ML BAG
     Route: 065
  4. SODIUM CHLORIDE [Suspect]
     Active Substance: SODIUM CHLORIDE
     Dosage: 1466 ML BAG
     Route: 065
  5. WATER FOR INJECTION [Suspect]
     Active Substance: WATER
     Indication: Parenteral nutrition
     Dosage: 3000 ML BAG
     Route: 065
  6. WATER FOR INJECTION [Suspect]
     Active Substance: WATER
     Dosage: 2000 ML BAG
     Route: 065
  7. WATER FOR INJECTION [Suspect]
     Active Substance: WATER
     Dosage: 1466 ML BAG
     Route: 065
  8. WATER FOR INJECTION [Suspect]
     Active Substance: WATER
     Dosage: 1466 ML BAG
     Route: 065
  9. DEXTROSE [Suspect]
     Active Substance: DEXTROSE\DEXTROSE MONOHYDRATE
     Indication: Parenteral nutrition
     Dosage: 3000 ML BAG
     Route: 065
  10. DEXTROSE [Suspect]
     Active Substance: DEXTROSE\DEXTROSE MONOHYDRATE
     Dosage: 2000 ML BAG
     Route: 065
  11. DEXTROSE [Suspect]
     Active Substance: DEXTROSE\DEXTROSE MONOHYDRATE
     Dosage: 1466 ML BAG
     Route: 065
  12. DEXTROSE [Suspect]
     Active Substance: DEXTROSE\DEXTROSE MONOHYDRATE
     Dosage: 1466 ML BAG
     Route: 065
  13. ELECTROLYTES NOS\MINERALS [Suspect]
     Active Substance: ELECTROLYTES NOS\MINERALS
     Indication: Parenteral nutrition
     Dosage: 3000 ML BAG
     Route: 065
  14. ELECTROLYTES NOS\MINERALS [Suspect]
     Active Substance: ELECTROLYTES NOS\MINERALS
     Dosage: 2000 ML BAG
     Route: 065
  15. ELECTROLYTES NOS\MINERALS [Suspect]
     Active Substance: ELECTROLYTES NOS\MINERALS
     Dosage: 1466 ML BAG
     Route: 065
  16. ELECTROLYTES NOS\MINERALS [Suspect]
     Active Substance: ELECTROLYTES NOS\MINERALS
     Dosage: 1466 ML BAG
     Route: 065
  17. AMINO ACIDS, SOURCE UNSPECIFIED [Suspect]
     Active Substance: AMINO ACIDS, SOURCE UNSPECIFIED
     Indication: Parenteral nutrition
     Dosage: 3000 ML BAG
     Route: 065
  18. AMINO ACIDS, SOURCE UNSPECIFIED [Suspect]
     Active Substance: AMINO ACIDS, SOURCE UNSPECIFIED
     Dosage: 2000 ML BAG
     Route: 065
  19. AMINO ACIDS, SOURCE UNSPECIFIED [Suspect]
     Active Substance: AMINO ACIDS, SOURCE UNSPECIFIED
     Dosage: 1466 ML BAG
     Route: 065
  20. AMINO ACIDS, SOURCE UNSPECIFIED [Suspect]
     Active Substance: AMINO ACIDS, SOURCE UNSPECIFIED
     Dosage: 1466 ML BAG
     Route: 065
  21. SMOFLIPID [Suspect]
     Active Substance: FISH OIL\MEDIUM-CHAIN TRIGLYCERIDES\OLIVE OIL\SOYBEAN OIL
     Indication: Parenteral nutrition
     Dosage: 3000 ML BAG
     Route: 065
  22. SMOFLIPID [Suspect]
     Active Substance: FISH OIL\MEDIUM-CHAIN TRIGLYCERIDES\OLIVE OIL\SOYBEAN OIL
     Dosage: 2000 ML BAG
     Route: 065
  23. SMOFLIPID [Suspect]
     Active Substance: FISH OIL\MEDIUM-CHAIN TRIGLYCERIDES\OLIVE OIL\SOYBEAN OIL
     Dosage: 1466 ML BAG
     Route: 065
  24. SMOFLIPID [Suspect]
     Active Substance: FISH OIL\MEDIUM-CHAIN TRIGLYCERIDES\OLIVE OIL\SOYBEAN OIL
     Dosage: 1466 ML BAG
     Route: 065
  25. VITAMINS [Suspect]
     Active Substance: VITAMINS
     Indication: Parenteral nutrition
     Dosage: 3000 ML BAG
     Route: 065
  26. VITAMINS [Suspect]
     Active Substance: VITAMINS
     Dosage: 2000 ML BAG
     Route: 065
  27. VITAMINS [Suspect]
     Active Substance: VITAMINS
     Dosage: 1466 ML BAG
     Route: 065
  28. VITAMINS [Suspect]
     Active Substance: VITAMINS
     Dosage: 1466 ML BAG
     Route: 065
  29. VITAMINS [Suspect]
     Active Substance: VITAMINS
     Dosage: 1466 ML BAG
     Route: 065
  30. ERGOCALCIFEROL\PHYTONADIONE\RETINOL\TOCOPHEROL [Suspect]
     Active Substance: ERGOCALCIFEROL\PHYTONADIONE\RETINOL\TOCOPHEROL
     Indication: Parenteral nutrition
     Dosage: 3000 ML BAG
     Route: 065
  31. ERGOCALCIFEROL\PHYTONADIONE\RETINOL\TOCOPHEROL [Suspect]
     Active Substance: ERGOCALCIFEROL\PHYTONADIONE\RETINOL\TOCOPHEROL
     Dosage: 1466 ML BAG
     Route: 065
  32. ERGOCALCIFEROL\PHYTONADIONE\RETINOL\TOCOPHEROL [Suspect]
     Active Substance: ERGOCALCIFEROL\PHYTONADIONE\RETINOL\TOCOPHEROL
     Dosage: 1466 ML BAG
     Route: 065
  33. ERGOCALCIFEROL\PHYTONADIONE\RETINOL\TOCOPHEROL [Suspect]
     Active Substance: ERGOCALCIFEROL\PHYTONADIONE\RETINOL\TOCOPHEROL
     Dosage: 2000 ML BAG
     Route: 065
  34. WATER FOR INJECTION [Suspect]
     Active Substance: WATER
     Indication: Parenteral nutrition
     Dosage: WATER FOR TPN FORMULATIONS, 3000 ML BAG
     Route: 065
  35. WATER FOR INJECTION [Suspect]
     Active Substance: WATER
     Dosage: WATER FOR TPN FORMULATIONS, 2000 ML BAG
     Route: 065
  36. WATER FOR INJECTION [Suspect]
     Active Substance: WATER
     Dosage: WATER FOR TPN FORMULATIONS, 1466 ML BAG
     Route: 065
  37. WATER FOR INJECTION [Suspect]
     Active Substance: WATER
     Dosage: WATER FOR TPN FORMULATIONS, 1466 ML BAG
     Route: 065
  38. ZINC SULFATE [Suspect]
     Active Substance: ZINC SULFATE
     Indication: Parenteral nutrition
     Dosage: 3000 ML BAG
     Route: 065
  39. ZINC SULFATE [Suspect]
     Active Substance: ZINC SULFATE
     Dosage: 2000 ML BAG
     Route: 065
  40. ZINC SULFATE [Suspect]
     Active Substance: ZINC SULFATE
     Dosage: 1466 ML BAG
     Route: 065
  41. ZINC SULFATE [Suspect]
     Active Substance: ZINC SULFATE
     Dosage: 1466 ML BAG
     Route: 065
  42. TAUROLIDINE [Suspect]
     Active Substance: TAUROLIDINE
     Indication: Parenteral nutrition
     Dosage: 5 TIMES PER WEEK
     Route: 065
  43. UNSPECIFIED INGREDIENT [Suspect]
     Active Substance: UNSPECIFIED INGREDIENT
     Route: 065

REACTIONS (2)
  - Thrombosis [Recovering/Resolving]
  - Muscular weakness [Recovering/Resolving]
